FAERS Safety Report 5033812-4 (Version None)
Quarter: 2006Q2

REPORT INFORMATION
  Report Type: 
  Country: None (occurrence: None)
  Receive Date: 20060620
  Receipt Date: 20060605
  Transmission Date: 20061013
  Serious: Yes (Life-Threatening, Hospitalization)
  Sender: FDA-Public Use
  Company Number: 2006RR-02556

PATIENT
  Age: 44 Year
  Sex: Female

DRUGS (4)
  1. CIPROFLOXACIN [Suspect]
     Indication: PYELONEPHRITIS
     Dosage: 500 MG, BID
  2. SOTALOL (SOTALOL) TABLET, 160MG [Suspect]
     Indication: ATRIAL FIBRILLATION
     Dosage: 160 MG, BID, ORAL
     Route: 048
  3. DIGOXIN [Concomitant]
  4. WARFARIN SODIUM [Concomitant]

REACTIONS (3)
  - DRUG INTERACTION [None]
  - SYNCOPE [None]
  - TORSADE DE POINTES [None]
